FAERS Safety Report 8491655-3 (Version None)
Quarter: 2012Q3

REPORT INFORMATION
  Report Type: 
  Country: None (occurrence: None)
  Receive Date: 20120706
  Receipt Date: 20120627
  Transmission Date: 20120928
  Serious: Yes (Other)
  Sender: FDA-Public Use
  Company Number: FR-BRISTOL-MYERS SQUIBB COMPANY-16722381

PATIENT
  Age: 50 Year
  Sex: Female

DRUGS (8)
  1. CLOMIPRAMINE HCL [Suspect]
     Indication: MAJOR DEPRESSION
     Dates: end: 20120626
  2. ATORVASTATIN [Concomitant]
  3. CLOMIPRAMINE HCL [Interacting]
     Indication: DEPRESSION
     Dates: end: 20120626
  4. ABILIFY [Interacting]
     Indication: DEPRESSION
     Dosage: INITIAL DOSE:5MG
     Dates: end: 20120626
  5. METFORMIN HCL [Concomitant]
  6. AMLODIPINE [Concomitant]
  7. ABILIFY [Interacting]
     Indication: MAJOR DEPRESSION
     Dosage: INITIAL DOSE:5MG
     Dates: end: 20120626
  8. OLMESARTAN MEDOXOMIL [Concomitant]

REACTIONS (3)
  - DRUG INTERACTION [None]
  - CONFUSIONAL STATE [None]
  - MOBILITY DECREASED [None]
